FAERS Safety Report 14929076 (Version 1)
Quarter: 2018Q2

REPORT INFORMATION
  Report Type: Report from Study
  Country: US (occurrence: US)
  Receive Date: 20180523
  Receipt Date: 20180523
  Transmission Date: 20180711
  Serious: Yes (Other)
  Sender: FDA-Public Use
  Company Number: US-AMGEN-USASL2018059317

PATIENT
  Age: 55 Year
  Sex: Female
  Weight: 84.81 kg

DRUGS (1)
  1. REPATHA [Suspect]
     Active Substance: EVOLOCUMAB
     Indication: BLOOD CHOLESTEROL ESTERASE INCREASED
     Dosage: 140 MG, Q2WK
     Route: 058
     Dates: start: 20180424, end: 20180427

REACTIONS (10)
  - Arthralgia [Unknown]
  - Back pain [Unknown]
  - Dysstasia [Unknown]
  - Pain in extremity [Unknown]
  - Bone pain [Unknown]
  - Muscular weakness [Unknown]
  - Diarrhoea [Recovered/Resolved]
  - Myalgia [Unknown]
  - Weight decreased [Unknown]
  - Therapeutic response unexpected [Unknown]

NARRATIVE: CASE EVENT DATE: 20180427
